FAERS Safety Report 15276167 (Version 1)
Quarter: 2018Q3

REPORT INFORMATION
  Report Type: Spontaneous
  Country: US (occurrence: US)
  Receive Date: 20180814
  Receipt Date: 20180814
  Transmission Date: 20181010
  Serious: No
  Sender: FDA-Public Use
  Company Number: US-MYLANLABS-2018M1059853

PATIENT
  Sex: Female

DRUGS (4)
  1. LIDOCAINE PATCH [Suspect]
     Active Substance: LIDOCAINE
     Indication: ARTHRITIS
     Dosage: UNK
     Route: 003
     Dates: start: 20180730, end: 20180731
  2. LIDOCAINE PATCH [Suspect]
     Active Substance: LIDOCAINE
     Indication: NEURALGIA
  3. LIDOCAINE PATCH [Suspect]
     Active Substance: LIDOCAINE
     Indication: EXOSTOSIS
     Dosage: UNK
     Route: 003
  4. LIDOCAINE PATCH [Suspect]
     Active Substance: LIDOCAINE
     Indication: MYALGIA

REACTIONS (4)
  - Product quality issue [Unknown]
  - Drug ineffective for unapproved indication [Unknown]
  - Product adhesion issue [Unknown]
  - Prescription drug used without a prescription [Unknown]

NARRATIVE: CASE EVENT DATE: 20180730
